FAERS Safety Report 5849543-4 (Version None)
Quarter: 2008Q3

REPORT INFORMATION
  Report Type: 
  Country: None (occurrence: None)
  Receive Date: 20080819
  Receipt Date: 20080819
  Transmission Date: 20090109
  Serious: Yes (Congenital Anomaly)
  Sender: FDA-Public Use
  Company Number: B0533639A

PATIENT

DRUGS (2)
  1. KIVEXA [Suspect]
     Indication: ANTIVIRAL PROPHYLAXIS
  2. VIRAMUNE [Suspect]
     Indication: ANTIVIRAL PROPHYLAXIS

REACTIONS (1)
  - CONGENITAL ANOMALY [None]
